FAERS Safety Report 8326888-X (Version None)
Quarter: 2012Q2

REPORT INFORMATION
  Report Type: 
  Country: None (occurrence: None)
  Receive Date: 20120501
  Receipt Date: 20120416
  Transmission Date: 20120825
  Serious: Yes (Hospitalization, Other)
  Sender: FDA-Public Use
  Company Number: US-WATSON-2012-06798

PATIENT
  Sex: Male
  Weight: 88 kg

DRUGS (2)
  1. DIAZEPAM [Suspect]
     Indication: BIPOLAR DISORDER
     Dosage: 5 MG, TID OR PRN
     Route: 048
  2. TOBRADEX [Suspect]
     Indication: LACERATION
     Dosage: UNK
     Route: 047
     Dates: start: 20120201

REACTIONS (1)
  - CONVULSION [None]
